FAERS Safety Report 5251892-8 (Version None)
Quarter: 2007Q1

REPORT INFORMATION
  Report Type: 
  Country: None (occurrence: None)
  Receive Date: 20070223
  Receipt Date: 20070212
  Transmission Date: 20070707
  Serious: Yes (Death, Hospitalization)
  Sender: FDA-Public Use
  Company Number: 2007SP002301

PATIENT
  Sex: Male

DRUGS (6)
  1. INTRON A [Suspect]
     Indication: MALIGNANT MELANOMA
     Dosage: 20 MG/M2;QD; IV
     Route: 042
     Dates: start: 20070129, end: 20070202
  2. OMEPRAZOLE [Concomitant]
  3. NIFEDIPINE [Concomitant]
  4. PREDNISOLONE [Concomitant]
  5. CO DYDROMOL [Concomitant]
  6. PLAQUENIL [Concomitant]

REACTIONS (7)
  - ACUTE MYOCARDIAL INFARCTION [None]
  - AORTIC DISSECTION [None]
  - CARDIO-RESPIRATORY ARREST [None]
  - ELECTROCARDIOGRAM ST SEGMENT ELEVATION [None]
  - GENERAL PHYSICAL HEALTH DETERIORATION [None]
  - HYPOTENSION [None]
  - INTESTINAL PERFORATION [None]
